FAERS Safety Report 6250948-0 (Version None)
Quarter: 2009Q2

REPORT INFORMATION
  Report Type: 
  Country: None (occurrence: None)
  Receive Date: 20090630
  Receipt Date: 20090123
  Transmission Date: 20091009
  Serious: No
  Sender: FDA-Public Use
  Company Number: US-ABBOTT-09P-163-0499767-00

PATIENT
  Age: 57 Year
  Sex: Male

DRUGS (5)
  1. ZEMPLAR [Suspect]
     Indication: RENAL DISORDER
     Route: 042
     Dates: start: 20081127
  2. ZEMPLAR [Suspect]
     Route: 042
     Dates: start: 20081127, end: 20081204
  3. ZEMPLAR [Suspect]
     Route: 042
     Dates: start: 20081204
  4. EPOGEN [Concomitant]
     Indication: RENAL DISORDER
     Dates: start: 20081127
  5. FERRLECIT [Concomitant]
     Indication: RENAL DISORDER
     Dates: start: 20081127

REACTIONS (3)
  - DYSPNOEA [None]
  - FLUSHING [None]
  - ILL-DEFINED DISORDER [None]
